FAERS Safety Report 7030266-3 (Version None)
Quarter: 2010Q4

REPORT INFORMATION
  Report Type: 
  Country: None (occurrence: None)
  Receive Date: 20101006
  Receipt Date: 20100602
  Transmission Date: 20110411
  Serious: Yes (Life-Threatening, Other)
  Sender: FDA-Public Use
  Company Number: NL-TEVA-250235ISR

PATIENT
  Age: 23 Year
  Sex: Male

DRUGS (1)
  1. PREDNISOLONE [Suspect]
     Indication: ACUTE LYMPHOCYTIC LEUKAEMIA

REACTIONS (10)
  - BLAST CELLS PRESENT [None]
  - CARDIAC ARREST [None]
  - HEADACHE [None]
  - HUNGER [None]
  - INSOMNIA [None]
  - INTERVERTEBRAL DISC PROTRUSION [None]
  - MYALGIA [None]
  - OSTEOPOROSIS [None]
  - PAIN [None]
  - PSYCHOTIC DISORDER [None]
